FAERS Safety Report 11759020 (Version 1)
Quarter: 2015Q4

REPORT INFORMATION
  Report Type: Spontaneous
  Country: BR (occurrence: BR)
  Receive Date: 20151120
  Receipt Date: 20151120
  Transmission Date: 20160304
  Serious: Yes (Disabling, Other)
  Sender: FDA-Public Use
  Company Number: BR-JNJFOC-20141012044

PATIENT
  Sex: Female
  Weight: 74 kg

DRUGS (13)
  1. REMICADE [Suspect]
     Active Substance: INFLIXIMAB
     Indication: RHEUMATOID ARTHRITIS
     Route: 042
     Dates: start: 201309
  2. REMICADE [Suspect]
     Active Substance: INFLIXIMAB
     Indication: RHEUMATOID ARTHRITIS
     Route: 042
     Dates: start: 20140916
  3. CLONAZEPAM. [Concomitant]
     Active Substance: CLONAZEPAM
     Route: 065
  4. REMICADE [Suspect]
     Active Substance: INFLIXIMAB
     Indication: BLINDNESS
     Route: 042
     Dates: start: 201309
  5. REMICADE [Suspect]
     Active Substance: INFLIXIMAB
     Indication: RHEUMATOID ARTHRITIS
     Route: 042
  6. REMICADE [Suspect]
     Active Substance: INFLIXIMAB
     Indication: RHEUMATOID ARTHRITIS
     Route: 042
     Dates: start: 20141014
  7. FLUOXETINE [Concomitant]
     Active Substance: FLUOXETINE HYDROCHLORIDE
     Route: 065
  8. REMICADE [Suspect]
     Active Substance: INFLIXIMAB
     Indication: BLINDNESS
     Route: 042
     Dates: start: 20140916
  9. OMEPRAZOLE. [Concomitant]
     Active Substance: OMEPRAZOLE
     Route: 065
  10. REMICADE [Suspect]
     Active Substance: INFLIXIMAB
     Indication: BLINDNESS
     Route: 042
     Dates: start: 20141014
  11. REMICADE [Suspect]
     Active Substance: INFLIXIMAB
     Indication: BLINDNESS
     Route: 042
  12. IBUPROFEN. [Concomitant]
     Active Substance: IBUPROFEN
     Indication: PAIN
     Route: 065
  13. TORSILAX [Concomitant]
     Active Substance: ACETAMINOPHEN\CAFFEINE\CARISOPRODOL\DICLOFENAC
     Indication: PAIN
     Route: 065

REACTIONS (9)
  - Blindness unilateral [Unknown]
  - Pain [Recovered/Resolved]
  - Therapeutic response unexpected [Not Recovered/Not Resolved]
  - Fibromyalgia [Unknown]
  - Product use issue [Not Recovered/Not Resolved]
  - Osteoporosis [Unknown]
  - Uveitis [Unknown]
  - Cataract [Unknown]
  - Rheumatic disorder [Unknown]

NARRATIVE: CASE EVENT DATE: 2014
